FAERS Safety Report 9162881 (Version 3)
Quarter: 2014Q1

REPORT INFORMATION
  Report Type: Report from Study
  Country: JP (occurrence: JP)
  Receive Date: 20130314
  Receipt Date: 20140131
  Transmission Date: 20141002
  Serious: Yes (Death)
  Sender: FDA-Public Use
  Company Number: JP-PFIZER INC-2013083624

PATIENT
  Age: 68 Year
  Sex: Male
  Weight: 63 kg

DRUGS (6)
  1. XALKORI [Suspect]
     Indication: NON-SMALL CELL LUNG CANCER
     Dosage: 250 MG, 2X/DAY
     Route: 048
     Dates: start: 20121122, end: 20121230
  2. ADONA [Concomitant]
     Indication: ADVERSE EVENT
     Dosage: 10 MG, 3X/DAY
     Route: 048
     Dates: start: 20120710, end: 20121230
  3. TRANSAMIN [Concomitant]
     Indication: ADVERSE EVENT
     Dosage: 500 MG, 3X/DAY
     Route: 048
     Dates: start: 20120710, end: 20121230
  4. MUCODYNE [Concomitant]
     Dosage: 500 MG, 3X/DAY
     Route: 048
     Dates: start: 20120614, end: 20121230
  5. NOVAMIN [Concomitant]
     Dosage: 5 MG, 3X/DAY
     Route: 048
     Dates: start: 20121124, end: 20121230
  6. NEW LECICARBON [Concomitant]
     Dosage: 1 DF, AS NEEDED
     Route: 054
     Dates: start: 20121203

REACTIONS (1)
  - Interstitial lung disease [Fatal]
